FAERS Safety Report 4687605-8 (Version None)
Quarter: 2005Q2

REPORT INFORMATION
  Report Type: 
  Country: None (occurrence: None)
  Receive Date: 20050610
  Receipt Date: 20050601
  Transmission Date: 20051028
  Serious: Yes (Other)
  Sender: FDA-Public Use
  Company Number: US-BRISTOL-MYERS SQUIBB COMPANY-12990081

PATIENT
  Age: 65 Year
  Sex: Female
  Weight: 52 kg

DRUGS (3)
  1. CETUXIMAB [Suspect]
     Indication: SQUAMOUS CELL CARCINOMA
     Dosage: 1ST COURSE CETUXIMAB 19-APR-2005. DOSE NOT CHANGED; DELAYED 5 DAYS UNTIL 06-JUN-2005.
     Route: 042
     Dates: start: 20050524, end: 20050524
  2. DOCETAXEL [Suspect]
     Indication: SQUAMOUS CELL CARCINOMA
     Route: 042
     Dates: start: 20050524, end: 20050524
  3. RADIATION THERAPY [Suspect]
     Indication: SQUAMOUS CELL CARCINOMA
     Dosage: 1ST COURSE RADIATION THERAPY 19-APR-2005. ARM 2 RADIATION THERAPY 58-66 GY OVER 5.5-6.5 WEEKS.
     Dates: start: 20050530, end: 20050530

REACTIONS (3)
  - MOUTH HAEMORRHAGE [None]
  - MUCOSAL INFLAMMATION [None]
  - STOMATITIS [None]
